FAERS Safety Report 7255787-X (Version None)
Quarter: 2011Q1

REPORT INFORMATION
  Report Type: 
  Country: None (occurrence: None)
  Receive Date: 20110129
  Receipt Date: 20100827
  Transmission Date: 20110831
  Serious: No
  Sender: FDA-Public Use
  Company Number: US-ABBOTT-10P-163-0668036-00

PATIENT
  Sex: Female
  Weight: 83.99 kg

DRUGS (2)
  1. PREDNISONE [Concomitant]
     Indication: RHEUMATOID ARTHRITIS
     Route: 048
     Dates: start: 20090101
  2. HUMIRA [Suspect]
     Indication: RHEUMATOID ARTHRITIS
     Route: 058
     Dates: start: 20100701

REACTIONS (7)
  - PARALYSIS [None]
  - OEDEMA [None]
  - SYRINGOMYELIA [None]
  - RHEUMATOID ARTHRITIS [None]
  - BACK PAIN [None]
  - INFLAMMATION [None]
  - HEADACHE [None]
